FAERS Safety Report 21860775 (Version 3)
Quarter: 2024Q3

REPORT INFORMATION
  Report Type: Spontaneous
  Country: US (occurrence: US)
  Receive Date: 20230113
  Receipt Date: 20240721
  Transmission Date: 20241016
  Serious: No
  Sender: NOVO NORDISK
  Company Number: US-NOVOPROD-983477

PATIENT
  Age: 64 Year
  Sex: Female

DRUGS (1)
  1. WEGOVY [Suspect]
     Active Substance: SEMAGLUTIDE
     Indication: Weight decreased
     Dosage: 2.4MG
     Route: 058
     Dates: start: 20220926

REACTIONS (17)
  - Pyrexia [Not Recovered/Not Resolved]
  - Vomiting [Not Recovered/Not Resolved]
  - Nausea [Not Recovered/Not Resolved]
  - Fatigue [Not Recovered/Not Resolved]
  - Drug dose titration not performed [Unknown]
  - Dyspnoea [Unknown]
  - Heart rate increased [Unknown]
  - Abdominal pain upper [Unknown]
  - Confusional state [Unknown]
  - Headache [Unknown]
  - Anxiety [Unknown]
  - Tremor [Unknown]
  - Hyperhidrosis [Unknown]
  - Dyspepsia [Unknown]
  - Dizziness [Unknown]
  - Dizziness [Unknown]
  - Ill-defined disorder [Unknown]

NARRATIVE: CASE EVENT DATE: 20220926
